FAERS Safety Report 15920427 (Version 1)
Quarter: 2019Q1

REPORT INFORMATION
  Report Type: Spontaneous
  Country: GB (occurrence: GB)
  Receive Date: 20190205
  Receipt Date: 20190205
  Transmission Date: 20190417
  Serious: No
  Sender: FDA-Public Use
  Company Number: GB-TIME-CAP LABS, INC.-2062168

PATIENT
  Sex: Female

DRUGS (1)
  1. ADE PARACETAMOL CASE FROM UK MARKET [Suspect]
     Active Substance: ACETAMINOPHEN
     Route: 048

REACTIONS (2)
  - Dysgeusia [None]
  - Hyperchlorhydria [None]
